FAERS Safety Report 21998524 (Version 1)
Quarter: 2023Q1

REPORT INFORMATION
  Report Type: Spontaneous
  Country: IN (occurrence: IN)
  Receive Date: 20230216
  Receipt Date: 20230216
  Transmission Date: 20230417
  Serious: Yes (Death, Life-Threatening, Hospitalization)
  Sender: FDA-Public Use
  Company Number: IN-STRIDES ARCOLAB LIMITED-2023SP002231

PATIENT
  Age: 50 Year
  Sex: Male

DRUGS (2)
  1. DEXAMETHASONE [Suspect]
     Active Substance: DEXAMETHASONE
     Indication: Prophylaxis against graft versus host disease
     Dosage: UNK
     Route: 065
  2. MYCOPHENOLATE MOFETIL [Suspect]
     Active Substance: MYCOPHENOLATE MOFETIL
     Indication: Prophylaxis against graft versus host disease
     Dosage: UNK
     Route: 065

REACTIONS (13)
  - Multiple organ dysfunction syndrome [Unknown]
  - Bacteraemia [Fatal]
  - Aeromonas infection [Fatal]
  - Sepsis [Fatal]
  - Anuria [Unknown]
  - Altered state of consciousness [Unknown]
  - Atrial fibrillation [Unknown]
  - Cardiac arrest [Unknown]
  - Hyponatraemia [Unknown]
  - Renal impairment [Unknown]
  - Thrombocytopenia [Unknown]
  - Necrotising fasciitis [Unknown]
  - Fournier^s gangrene [Unknown]
